FAERS Safety Report 9153515 (Version 1)
Quarter: 2013Q1

REPORT INFORMATION
  Report Type: Spontaneous
  Country: US (occurrence: None)
  Receive Date: 20130204
  Receipt Date: 20130204
  Transmission Date: 20140127
  Serious: Yes (Hospitalization)
  Sender: FDA-Public Use
  Company Number: NSR_00793_2013

PATIENT
  Age: 24 Month
  Sex: Male

DRUGS (1)
  1. CLONIDINE [Suspect]
     Indication: PRODUCT USED FOR UNKNOWN INDICATION

REACTIONS (7)
  - Lethargy [None]
  - Hypotension [None]
  - Miosis [None]
  - Hypotonia [None]
  - Accidental exposure to product by child [None]
  - Coma scale abnormal [None]
  - Toxicity to various agents [None]
